FAERS Safety Report 17401952 (Version 1)
Quarter: 2020Q1

REPORT INFORMATION
  Report Type: Spontaneous
  Country: US (occurrence: US)
  Receive Date: 20200127
  Receipt Date: 20200127
  Transmission Date: 20200409
  Serious: No
  Sender: FDA-Public Use
  Company Number: None

PATIENT
  Age: 25 Year
  Sex: Male
  Weight: 81.19 kg

DRUGS (8)
  1. RISPERIDONE. [Suspect]
     Active Substance: RISPERIDONE
     Indication: BIPOLAR DISORDER
     Dosage: ?          QUANTITY:15;?
     Route: 048
     Dates: start: 20160707
  2. ARIPIPRAZOLE. [Concomitant]
     Active Substance: ARIPIPRAZOLE
  3. TRETINOIN. [Concomitant]
     Active Substance: TRETINOIN
  4. BENZOYL PEROXIDE. [Concomitant]
     Active Substance: BENZOYL PEROXIDE
  5. FLOXACIN [Concomitant]
     Active Substance: NORFLOXACIN
  6. PREDNISONE ACETATE [Concomitant]
     Active Substance: PREDNISONE ACETATE
  7. FLUTICASONE. [Concomitant]
     Active Substance: FLUTICASONE
  8. LORATADINE. [Concomitant]
     Active Substance: LORATADINE

REACTIONS (2)
  - Road traffic accident [None]
  - Fatigue [None]

NARRATIVE: CASE EVENT DATE: 20190208
